FAERS Safety Report 16564677 (Version 1)
Quarter: 2019Q3

REPORT INFORMATION
  Report Type: Spontaneous
  Country: DE (occurrence: DE)
  Receive Date: 20190712
  Receipt Date: 20190712
  Transmission Date: 20191004
  Serious: Yes (Hospitalization)
  Sender: FDA-Public Use
  Company Number: DE-ACCORD-138275

PATIENT
  Age: 68 Year
  Sex: Female
  Weight: 68 kg

DRUGS (15)
  1. PANTOPRAZOLE [Concomitant]
     Active Substance: PANTOPRAZOLE
     Dosage: 40 MG, 1-0-0-0
     Route: 048
  2. HYDROCHLOROTHIAZIDE. [Concomitant]
     Active Substance: HYDROCHLOROTHIAZIDE
     Dosage: 12.5 MG, 1-0-0-0
     Route: 048
  3. LEVOTHYROXIN-NATRIUM [Concomitant]
     Active Substance: LEVOTHYROXINE SODIUM
     Dosage: 50 MICROG, 1-0-0-0,
     Route: 048
  4. FLUOROURACIL. [Suspect]
     Active Substance: FLUOROURACIL
     Indication: PRODUCT USED FOR UNKNOWN INDICATION
     Dosage: NK MG/KG KG, ACCORDING TO SCHEME, MOST RECENTLY 19.12.2017
     Route: 042
  5. IRINOTECAN [Suspect]
     Active Substance: IRINOTECAN
     Indication: PRODUCT USED FOR UNKNOWN INDICATION
     Dosage: NK MG/KG KG,ACCORDING TO SCHEME, MOST RECENTLY 19.12.2017
     Route: 042
  6. RAMIPRIL. [Concomitant]
     Active Substance: RAMIPRIL
     Dosage: 2.5 MG, 1-0-0-0
     Route: 048
  7. ONDANSETRON [Concomitant]
     Active Substance: ONDANSETRON
     Dosage: 8 MG, 1-0-1-0
     Route: 048
  8. IRENAT [Concomitant]
     Active Substance: SODIUM PERCHLORATE
     Dosage: 300 MG / ML, 1-1-1-0 PER 20O
     Route: 048
  9. METOPROLOL. [Concomitant]
     Active Substance: METOPROLOL
     Dosage: 23.75 MG, 1-0-1-0
     Route: 048
  10. ALUMINIUM HYDROXIDE/MAGNESIUM HYDROXIDE [Concomitant]
     Dosage: 1 BAG, IF NECESSARY, POWDER
     Route: 048
  11. KALIUM [Concomitant]
     Active Substance: POTASSIUM CHLORIDE
     Dosage: BY VALUE
     Route: 048
  12. CETUXIMAB. [Suspect]
     Active Substance: CETUXIMAB
     Indication: PRODUCT USED FOR UNKNOWN INDICATION
     Dosage: NK MG/KG KG,ACCORDING TO SCHEME, MOST RECENTLY 19.12.2017
     Route: 042
  13. MOVICOL [Concomitant]
     Active Substance: POLYETHYLENE GLYCOL 3350\POTASSIUM CHLORIDE\SODIUM BICARBONATE\SODIUM CHLORIDE
     Dosage: 1 BAG, IF NECESSARY, POWDER
     Route: 048
  14. DEXAMETHASONE. [Concomitant]
     Active Substance: DEXAMETHASONE
     Dosage: 8 MG, 1-0-0-0
     Route: 048
  15. LEDERFOLAT [Suspect]
     Active Substance: LEUCOVORIN CALCIUM
     Indication: PRODUCT USED FOR UNKNOWN INDICATION
     Dosage: NK MG/KG KG, ACCORDING TO SCHEME, MOST RECENTLY 19.12.2017
     Route: 042

REACTIONS (3)
  - Arrhythmia [Unknown]
  - Pyrexia [Unknown]
  - General physical health deterioration [Unknown]
